FAERS Safety Report 4745591-6 (Version None)
Quarter: 2005Q3

REPORT INFORMATION
  Report Type: 
  Country: None (occurrence: None)
  Receive Date: 20050815
  Receipt Date: 20050804
  Transmission Date: 20060218
  Serious: Yes (Other)
  Sender: FDA-Public Use
  Company Number: CHPA2005US02028

PATIENT
  Sex: Female

DRUGS (1)
  1. PRIVATE LABEL STEP 1 21 MG ACCT UNKNOWN (NCH) (NICOTINE) TRANS-THERAPE [Suspect]
     Dosage: TRANSDERMAL
     Route: 062

REACTIONS (1)
  - LOSS OF CONSCIOUSNESS [None]
